FAERS Safety Report 20929645 (Version 1)
Quarter: 2022Q2

REPORT INFORMATION
  Report Type: Spontaneous
  Country: US (occurrence: US)
  Receive Date: 20220608
  Receipt Date: 20220608
  Transmission Date: 20220721
  Serious: No
  Sender: FDA-Public Use
  Company Number: US-PERRIGO-22US003435

PATIENT
  Age: 38 Year
  Sex: Male
  Weight: 84.807 kg

DRUGS (2)
  1. MINOXIDIL [Suspect]
     Active Substance: MINOXIDIL
     Indication: Alopecia
     Dosage: 1/2 CAPFUL, BID
     Route: 061
     Dates: start: 20220201, end: 20220227
  2. FINASTERIDE [Concomitant]
     Active Substance: FINASTERIDE
     Indication: Alopecia
     Dosage: UNKNOWN, UNKNOWN
     Route: 065
     Dates: start: 202202

REACTIONS (6)
  - Application site dryness [Recovered/Resolved]
  - Application site exfoliation [Recovered/Resolved]
  - Application site haemorrhage [Recovered/Resolved]
  - Application site scab [Recovered/Resolved]
  - Application site erythema [Recovered/Resolved]
  - Application site pain [Recovered/Resolved]

NARRATIVE: CASE EVENT DATE: 20220215
